FAERS Safety Report 9255585 (Version 1)
Quarter: 2013Q2

REPORT INFORMATION
  Report Type: Spontaneous
  Country: US (occurrence: US)
  Receive Date: 20130425
  Receipt Date: 20130425
  Transmission Date: 20140414
  Serious: Yes (Congenital Anomaly)
  Sender: FDA-Public Use
  Company Number: US-GLAXOSMITHKLINE-A1021234A

PATIENT
  Age: 0 Year
  Sex: Female

DRUGS (4)
  1. PAXIL [Suspect]
     Indication: PRODUCT USED FOR UNKNOWN INDICATION
     Route: 064
     Dates: start: 200206, end: 200208
  2. PAXIL CR [Suspect]
     Indication: PRODUCT USED FOR UNKNOWN INDICATION
     Dosage: 25MG PER DAY
     Route: 064
     Dates: start: 200208, end: 200210
  3. METHADONE [Concomitant]
     Route: 064
  4. UNKNOWN BLOOD PRESSURE MEDICATION [Concomitant]
     Route: 064

REACTIONS (4)
  - Turner^s syndrome [Unknown]
  - Skeletal dysplasia [Unknown]
  - Body height below normal [Unknown]
  - Foetal exposure during pregnancy [Unknown]
